FAERS Safety Report 17096434 (Version 1)
Quarter: 2019Q4

REPORT INFORMATION
  Report Type: Spontaneous
  Country: NL (occurrence: NL)
  Receive Date: 20191202
  Receipt Date: 20191202
  Transmission Date: 20200122
  Serious: Yes (Other)
  Sender: FDA-Public Use
  Company Number: NL-TEVA-2019-NL-1144215

PATIENT
  Age: 59 Year
  Sex: Female

DRUGS (3)
  1. METHOTREXAAT INJECTIEVLOEISTOF, 25 MG/ML (MILLIGRAM PER MILLILITER)MET [Suspect]
     Active Substance: METHOTREXATE
     Indication: ANKYLOSING SPONDYLITIS
     Dosage: 20 MG
     Dates: start: 2005
  2. ENBREL [Suspect]
     Active Substance: ETANERCEPT
     Indication: ANKYLOSING SPONDYLITIS
     Dosage: 1W50 MG
     Dates: start: 2006, end: 20130811
  3. SALOFALK [Concomitant]

REACTIONS (1)
  - Malignant melanoma [Recovered/Resolved]

NARRATIVE: CASE EVENT DATE: 201606
